FAERS Safety Report 8143992-X (Version None)
Quarter: 2012Q1

REPORT INFORMATION
  Report Type: 
  Country: None (occurrence: None)
  Receive Date: 20120217
  Receipt Date: 20120217
  Transmission Date: 20120608
  Serious: Yes (Other)
  Sender: FDA-Public Use
  Company Number: None

PATIENT
  Age: 49 Year
  Sex: Male
  Weight: 60.781 kg

DRUGS (3)
  1. OXYCODONE HCL [Suspect]
     Indication: PAIN
     Dosage: 3 TABS PER DOSE + 1 AT BEDTIME
     Route: 048
     Dates: start: 20120118, end: 20120217
  2. OXYCODONE HCL [Suspect]
     Indication: INTERVERTEBRAL DISC DEGENERATION
     Dosage: 3 TABS PER DOSE + 1 AT BEDTIME
     Route: 048
     Dates: start: 20120118, end: 20120217
  3. OXYCODONE HCL [Suspect]
     Indication: CERVICAL SPINAL STENOSIS
     Dosage: 3 TABS PER DOSE + 1 AT BEDTIME
     Route: 048
     Dates: start: 20120118, end: 20120217

REACTIONS (3)
  - DRUG WITHDRAWAL SYNDROME [None]
  - PRODUCT SUBSTITUTION ISSUE [None]
  - INADEQUATE ANALGESIA [None]
